FAERS Safety Report 8951151 (Version 2)
Quarter: 2013Q1

REPORT INFORMATION
  Report Type: Spontaneous
  Country: BR (occurrence: BR)
  Receive Date: 20121207
  Receipt Date: 20130108
  Transmission Date: 20140127
  Serious: Yes (Hospitalization)
  Sender: FDA-Public Use
  Company Number: PHHY2012BR110130

PATIENT
  Sex: Male

DRUGS (9)
  1. DIOVAN [Suspect]
     Indication: HYPERTENSION
     Dosage: 160 MG, QD
     Route: 048
     Dates: end: 201209
  2. DIOVAN [Suspect]
     Dosage: 80 MG, DAILY
     Route: 048
  3. FUROSEMIDE [Concomitant]
     Indication: DIURETIC THERAPY
     Dosage: 2 DF, DAILY
     Dates: start: 201209
  4. MONOCORDIL [Concomitant]
     Indication: CARDIAC DISORDER
     Dosage: 2 DF, DAILY
  5. CARVEDILOL [Concomitant]
     Indication: CARDIAC DISORDER
     Dosage: 2 DF, DAILY
     Dates: start: 201209
  6. OMEPRAZOLE [Concomitant]
     Indication: GASTRIC DISORDER
     Dosage: 5 MG, DAILY
     Route: 048
  7. DIPIRONE [Concomitant]
     Indication: PAIN
     Route: 048
  8. MAREVAN [Concomitant]
     Indication: ANTICOAGULANT THERAPY
     Dosage: 0.5 DF, DAILY
     Route: 048
  9. MAREVAN [Concomitant]
     Dosage: 0.25 DF, UNK
     Route: 048

REACTIONS (5)
  - Renal disorder [Recovering/Resolving]
  - Pulmonary oedema [Recovered/Resolved]
  - Cardiac valve disease [Recovering/Resolving]
  - Fluid retention [Recovering/Resolving]
  - Heart rate decreased [Recovering/Resolving]
